FAERS Safety Report 8509715-7 (Version None)
Quarter: 2012Q3

REPORT INFORMATION
  Report Type: 
  Country: None (occurrence: None)
  Receive Date: 20120713
  Receipt Date: 20120703
  Transmission Date: 20120928
  Serious: Yes (Other)
  Sender: FDA-Public Use
  Company Number: US-ABBOTT-12P-163-0953323-00

PATIENT
  Sex: Female
  Weight: 90.8 kg

DRUGS (5)
  1. CORTEF [Suspect]
     Indication: HYPOPITUITARISM
     Dosage: 20 MG IN THE MORNING AND 5 MG AT 2PM
     Route: 048
     Dates: start: 20090101
  2. UNSPECIFIED ASTHMA MEDICATIONS [Concomitant]
     Indication: ASTHMA
  3. SYNTHROID [Suspect]
     Indication: HYPOTHYROIDISM
     Route: 048
     Dates: start: 20090101
  4. SYNTHROID [Suspect]
     Dosage: SPLITTING PILL IN HALF
  5. UNSPECIFIED ANTIBIOTIC [Concomitant]
     Indication: PRODUCT USED FOR UNKNOWN INDICATION

REACTIONS (2)
  - WRONG TECHNIQUE IN DRUG USAGE PROCESS [None]
  - LYME DISEASE [None]
